FAERS Safety Report 13951861 (Version 2)
Quarter: 2017Q3

REPORT INFORMATION
  Report Type: Spontaneous
  Country: FR (occurrence: FR)
  Receive Date: 20170908
  Receipt Date: 20170927
  Transmission Date: 20171128
  Serious: Yes (Other)
  Sender: FDA-Public Use
  Company Number: FR-MERCK KGAA-2025808

PATIENT
  Age: 52 Year
  Sex: Male

DRUGS (5)
  1. NOVOTHYROX [Suspect]
     Active Substance: LEVOTHYROXINE SODIUM
     Indication: THYROIDECTOMY
     Route: 048
     Dates: start: 201705
  2. CYMBALTA [Concomitant]
     Active Substance: DULOXETINE HYDROCHLORIDE
     Route: 048
  3. XANAX [Concomitant]
     Active Substance: ALPRAZOLAM
     Route: 048
     Dates: start: 2008
  4. IMOVANE [Concomitant]
     Active Substance: ZOPICLONE
     Route: 048
     Dates: start: 2013
  5. EZETROL [Concomitant]
     Active Substance: EZETIMIBE
     Dates: start: 2014

REACTIONS (3)
  - Fatigue [Recovered/Resolved with Sequelae]
  - Tachycardia [Not Recovered/Not Resolved]
  - Blood thyroid stimulating hormone decreased [Not Recovered/Not Resolved]

NARRATIVE: CASE EVENT DATE: 20170821
